FAERS Safety Report 15778165 (Version 1)
Quarter: 2018Q4

REPORT INFORMATION
  Report Type: Spontaneous
  Country: US (occurrence: US)
  Receive Date: 20181231
  Receipt Date: 20181231
  Transmission Date: 20190205
  Serious: No
  Sender: FDA-Public Use
  Company Number: US-AVEDRO-AVE-2018-0262-AE

PATIENT
  Age: 41 Year
  Sex: Female

DRUGS (3)
  1. BANDAGE CONTACT LENS [Concomitant]
     Active Substance: DEVICE
     Indication: PRODUCT USED FOR UNKNOWN INDICATION
     Route: 047
  2. BANDAGE CONTACT LENS [Concomitant]
     Active Substance: DEVICE
     Route: 047
  3. AVEDRO CROSS-LINKING PRODUCT(S), UNSPECIFIED (RIBOFLAVIN 5^-PHOSPHATE SODIUM) [Suspect]
     Active Substance: RIBOFLAVIN 5^-PHOSPHATE SODIUM
     Indication: KERATOCONUS
     Route: 047
     Dates: start: 20180726, end: 20180726

REACTIONS (10)
  - Discomfort [Unknown]
  - Vision blurred [Recovering/Resolving]
  - Foreign body sensation in eyes [Unknown]
  - Photophobia [Unknown]
  - Visual impairment [Unknown]
  - Eye swelling [Unknown]
  - Eye pain [Recovered/Resolved]
  - Eye disorder [Recovered/Resolved]
  - Restlessness [Unknown]
  - Foreign body sensation in eyes [Unknown]

NARRATIVE: CASE EVENT DATE: 20180726
